FAERS Safety Report 6783500-9 (Version None)
Quarter: 2010Q2

REPORT INFORMATION
  Report Type: 
  Country: None (occurrence: None)
  Receive Date: 20100622
  Receipt Date: 20100609
  Transmission Date: 20101027
  Serious: Yes (Hospitalization, Other)
  Sender: FDA-Public Use
  Company Number: PHHY2009DE24025

PATIENT
  Age: 76 Year
  Sex: Male

DRUGS (4)
  1. EXJADE [Suspect]
     Indication: HAEMOSIDEROSIS
     Dosage: 20 MG/KG/DAY (2000 MG/DAY)
     Route: 048
     Dates: start: 20060320
  2. EXJADE [Suspect]
     Dosage: 30 MG/KG/DAY (3000 MG/DAY)
     Route: 048
  3. EXJADE [Suspect]
     Dosage: 20 MG/KG/DAY (2000 MG/DAY)
     Route: 048
  4. EXJADE [Suspect]
     Dosage: 10 MG/KG/DAY (1000 MG/DAY)
     Route: 048

REACTIONS (4)
  - DIALYSIS [None]
  - RENAL FAILURE ACUTE [None]
  - RENAL FUNCTION TEST ABNORMAL [None]
  - SALMONELLA SEPSIS [None]
